FAERS Safety Report 14845533 (Version 3)
Quarter: 2018Q3

REPORT INFORMATION
  Report Type: Spontaneous
  Country: US (occurrence: US)
  Receive Date: 20180504
  Receipt Date: 20180711
  Transmission Date: 20181010
  Serious: No
  Sender: FDA-Public Use
  Company Number: US-PFIZER INC-2017526075

PATIENT
  Age: 44 Year
  Sex: Female
  Weight: 138.78 kg

DRUGS (21)
  1. NEOSAR [Concomitant]
     Active Substance: CYCLOPHOSPHAMIDE
     Dosage: 1350 MG, UNK
     Dates: start: 20141219
  2. CYTOXAN [Concomitant]
     Active Substance: CYCLOPHOSPHAMIDE
     Dosage: 1350 MG, UNK
     Dates: start: 20141107
  3. TAMIFLU [Concomitant]
     Active Substance: OSELTAMIVIR PHOSPHATE
     Dosage: UNK
  4. DOCETAXEL. [Suspect]
     Active Substance: DOCETAXEL
     Indication: CHEMOTHERAPY
     Dosage: 170 MG, CYCLIC (EVERY 3 WEEKS, NUMBER OF CYCLES: 4)
     Dates: start: 20141017
  5. CYTOXAN [Concomitant]
     Active Substance: CYCLOPHOSPHAMIDE
     Dosage: 1350 MG, UNK
     Dates: start: 20141128
  6. ONDANSETRON [Concomitant]
     Active Substance: ONDANSETRON
     Dosage: UNK
  7. CYTOXAN [Concomitant]
     Active Substance: CYCLOPHOSPHAMIDE
     Dosage: 1350 MG, UNK
     Dates: start: 20141219
  8. DOCETAXEL. [Suspect]
     Active Substance: DOCETAXEL
     Dosage: 170 MG, CYCLIC (EVERY 3 WEEKS, NUMBER OF CYCLES: 4)
     Dates: start: 20141128
  9. DOCETAXEL. [Suspect]
     Active Substance: DOCETAXEL
     Dosage: 170 MG, CYCLIC (EVERY 3 WEEKS, NUMBER OF CYCLES: 4)
     Dates: start: 20141219
  10. TAXOTERE [Suspect]
     Active Substance: DOCETAXEL
     Indication: CHEMOTHERAPY
     Dosage: 170 MG, CYCLIC (EVERY 3 WEEKS, NUMBER OF CYCLES: 4)
     Dates: start: 20141017
  11. TAXOTERE [Suspect]
     Active Substance: DOCETAXEL
     Dosage: 170 MG, CYCLIC (NEVERY 3 WEEKS, UMBER OF CYCLES: 4)
     Dates: start: 20141219
  12. NEOSAR [Concomitant]
     Active Substance: CYCLOPHOSPHAMIDE
     Dosage: 1350 MG, UNK
     Dates: start: 20141107
  13. CYTOXAN [Concomitant]
     Active Substance: CYCLOPHOSPHAMIDE
     Indication: BREAST CANCER
     Dosage: 1350 MG, UNK
     Dates: start: 20141017
  14. NEOSAR [Concomitant]
     Active Substance: CYCLOPHOSPHAMIDE
     Indication: BREAST CANCER
     Dosage: 1350 MG, UNK
     Dates: start: 20141017
  15. NEOSAR [Concomitant]
     Active Substance: CYCLOPHOSPHAMIDE
     Dosage: 1350 MG, UNK
     Dates: start: 20141128
  16. DEXAMETHASON /00016001/ [Concomitant]
     Active Substance: DEXAMETHASONE
     Dosage: UNK
  17. AZITHROMYCIN ANHYDROUS. [Concomitant]
     Active Substance: AZITHROMYCIN ANHYDROUS
     Dosage: UNK
  18. DOCETAXEL. [Suspect]
     Active Substance: DOCETAXEL
     Indication: BREAST CANCER
     Dosage: 170 MG, CYCLIC (EVERY 3 WEEKS, NUMBER OF CYCLES: 4)
     Dates: start: 20141107
  19. CEPHALEXIN /00145501/ [Concomitant]
     Active Substance: CEPHALEXIN
     Dosage: UNK
  20. TAXOTERE [Suspect]
     Active Substance: DOCETAXEL
     Indication: BREAST CANCER
     Dosage: 170 MG, CYCLIC (NEVERY 3 WEEKS, UMBER OF CYCLES: 4)
     Dates: start: 20141107
  21. TAXOTERE [Suspect]
     Active Substance: DOCETAXEL
     Dosage: 170 MG, CYCLIC (NEVERY 3 WEEKS, UMBER OF CYCLES: 4)
     Dates: start: 20141128

REACTIONS (5)
  - Hair disorder [Unknown]
  - Alopecia [Unknown]
  - Madarosis [Unknown]
  - Hair texture abnormal [Unknown]
  - Hair colour changes [Unknown]

NARRATIVE: CASE EVENT DATE: 201506
